FAERS Safety Report 9183900 (Version 1)
Quarter: 2013Q1

REPORT INFORMATION
  Report Type: Spontaneous
  Country: US (occurrence: US)
  Receive Date: 20130322
  Receipt Date: 20130322
  Transmission Date: 20140127
  Serious: No
  Sender: FDA-Public Use
  Company Number: US-BRISTOL-MYERS SQUIBB COMPANY-16660250

PATIENT
  Age: 60 Year
  Sex: Male

DRUGS (5)
  1. ERBITUX [Suspect]
     Indication: COLON CANCER METASTATIC
     Dosage: STARTED 2 WEEKS AGO
     Route: 042
     Dates: start: 20120523
  2. COUMADIN [Suspect]
  3. FOLINIC ACID [Concomitant]
  4. FLUOROURACIL [Concomitant]
  5. IRINOTECAN [Concomitant]

REACTIONS (1)
  - Acne [Recovering/Resolving]
